FAERS Safety Report 12001642 (Version 1)
Quarter: 2016Q1

REPORT INFORMATION
  Report Type: Spontaneous
  Country: US (occurrence: US)
  Receive Date: 20160204
  Receipt Date: 20160204
  Transmission Date: 20160526
  Serious: No
  Sender: FDA-Public Use
  Company Number: US-PERRIGO-15US004366

PATIENT
  Age: 62 Year
  Sex: Male
  Weight: 113.38 kg

DRUGS (5)
  1. DRUGS USED IN DIABETES [Concomitant]
     Active Substance: UNSPECIFIED INGREDIENT
     Indication: DIABETES MELLITUS
     Dosage: UNK
     Route: 065
  2. IBUPROFEN. [Suspect]
     Active Substance: IBUPROFEN
     Dosage: 800 MG, SINGLE
     Route: 048
     Dates: start: 20150421, end: 20150421
  3. IBUPROFEN. [Suspect]
     Active Substance: IBUPROFEN
     Indication: PAIN
     Dosage: 600 MG TO 800 MG, PRN
     Route: 048
  4. IBUPROFEN. [Suspect]
     Active Substance: IBUPROFEN
     Dosage: 600 MG, SINGLE
     Route: 048
     Dates: start: 20150421, end: 20150421
  5. CEPHALEXIN                         /00145501/ [Concomitant]
     Active Substance: CEPHALEXIN
     Indication: SINUSITIS
     Dosage: UNK
     Route: 065
     Dates: start: 201504

REACTIONS (4)
  - Overdose [Unknown]
  - Drug effect decreased [Unknown]
  - Incorrect dose administered [Unknown]
  - Expired product administered [Unknown]

NARRATIVE: CASE EVENT DATE: 20150421
